FAERS Safety Report 7624833 (Version 7)
Quarter: 2014Q1

REPORT INFORMATION
  Report Type: Spontaneous
  Country: US (occurrence: US)
  Receive Date: 20101012
  Receipt Date: 20140123
  Transmission Date: 20141002
  Serious: Yes (Hospitalization, Other)
  Sender: FDA-Public Use
  Company Number: US-BAYER-201036346NA

PATIENT
  Age: 30 Year
  Sex: Female
  Weight: 65.76 kg

DRUGS (15)
  1. YASMIN [Suspect]
     Indication: PRODUCT USED FOR UNKNOWN INDICATION
     Dosage: UNK
     Route: 048
     Dates: start: 200505, end: 200905
  2. YAZ [Suspect]
     Dosage: UNK
     Dates: start: 200505, end: 2009
  3. OCELLA [Suspect]
     Dosage: UNK
     Dates: start: 200505, end: 2009
  4. ANTACIDS [Concomitant]
  5. WELLBUTRIN [Concomitant]
  6. ALLEGRA-D [Concomitant]
  7. NEXIUM [Concomitant]
  8. BACTRIM [Concomitant]
     Indication: URINARY TRACT INFECTION
  9. INDOMETHACIN [Concomitant]
     Indication: URINARY TRACT INFECTION
  10. XANAX [Concomitant]
  11. KLONOPIN [Concomitant]
  12. LAMICTAL [Concomitant]
  13. CELEXA [Concomitant]
  14. ALBUTEROL INHALER [Concomitant]
  15. ADVIL [Concomitant]

REACTIONS (3)
  - Gallbladder disorder [Unknown]
  - Cholecystitis chronic [Unknown]
  - Pain [None]
